FAERS Safety Report 24922639 (Version 1)
Quarter: 2025Q1

REPORT INFORMATION
  Report Type: Spontaneous
  Country: CA (occurrence: CA)
  Receive Date: 20250204
  Receipt Date: 20250204
  Transmission Date: 20250409
  Serious: Yes (Other)
  Sender: CELLTRION
  Company Number: CA-PFIZER INC-PV202500012613

PATIENT

DRUGS (8)
  1. INFLECTRA [Suspect]
     Active Substance: INFLIXIMAB-DYYB
     Indication: Crohn^s disease
     Route: 042
     Dates: start: 20241216
  2. INFLECTRA [Suspect]
     Active Substance: INFLIXIMAB-DYYB
     Route: 042
     Dates: start: 20250127
  3. METOPROLOL [Concomitant]
     Active Substance: METOPROLOL
  4. TAMOXIFEN [Concomitant]
     Active Substance: TAMOXIFEN
  5. PREGABALIN [Concomitant]
     Active Substance: PREGABALIN
  6. FERROUS FUMARATE [Concomitant]
     Active Substance: FERROUS FUMARATE
  7. WELLBUTRIN [Concomitant]
     Active Substance: BUPROPION HYDROCHLORIDE
  8. GOSERELIN [Concomitant]
     Active Substance: GOSERELIN

REACTIONS (3)
  - Bone cancer [Not Recovered/Not Resolved]
  - Rib fracture [Unknown]
  - Chest pain [Unknown]

NARRATIVE: CASE EVENT DATE: 20240101
